FAERS Safety Report 4865142-5 (Version None)
Quarter: 2005Q4

REPORT INFORMATION
  Report Type: 
  Country: None (occurrence: None)
  Receive Date: 20051223
  Receipt Date: 20051214
  Transmission Date: 20060501
  Serious: Yes (Hospitalization)
  Sender: FDA-Public Use
  Company Number: FR-BRISTOL-MYERS SQUIBB COMPANY-13218250

PATIENT
  Age: 53 Year
  Sex: Male

DRUGS (4)
  1. REYATAZ [Suspect]
     Indication: HIV INFECTION
     Route: 048
     Dates: start: 20051020, end: 20051029
  2. RETROVIR [Suspect]
     Indication: HIV INFECTION
     Dates: start: 20051020, end: 20051029
  3. FUZEON [Suspect]
     Indication: HIV INFECTION
     Dates: start: 20051020, end: 20051029
  4. VIDEX [Concomitant]
     Dates: start: 20050616, end: 20051029

REACTIONS (1)
  - RENAL FAILURE [None]
